FAERS Safety Report 8460366-2 (Version None)
Quarter: 2012Q2

REPORT INFORMATION
  Report Type: 
  Country: None (occurrence: None)
  Receive Date: 20120622
  Receipt Date: 20120612
  Transmission Date: 20120825
  Serious: Yes (Hospitalization, Other)
  Sender: FDA-Public Use
  Company Number: US-ABBOTT-12P-163-0945362-00

PATIENT
  Sex: Female

DRUGS (11)
  1. BENICAR [Concomitant]
     Indication: BLOOD PRESSURE
  2. MIRTAZAPINE [Concomitant]
     Indication: DEPRESSION
  3. POTASSIUM ACETATE [Concomitant]
     Indication: MINERAL SUPPLEMENTATION
  4. HUMIRA [Suspect]
     Indication: PSORIATIC ARTHROPATHY
     Route: 058
     Dates: start: 20101201, end: 20110701
  5. TRAZODONE HCL [Concomitant]
     Indication: DEPRESSION
  6. HUMIRA [Suspect]
     Route: 058
     Dates: start: 20110801, end: 20120201
  7. HUMIRA [Suspect]
     Route: 058
     Dates: start: 20120501
  8. LIPITOR [Concomitant]
     Indication: BLOOD CHOLESTEROL
  9. ZANTAC [Concomitant]
     Indication: GASTRIC DISORDER
  10. FUROSEMIDE [Concomitant]
     Indication: SWELLING
  11. XANAX [Concomitant]
     Indication: ANXIOLYTIC THERAPY

REACTIONS (6)
  - TOOTH INFECTION [None]
  - OEDEMA PERIPHERAL [None]
  - VARICOPHLEBITIS [None]
  - CELLULITIS [None]
  - FALL [None]
  - PELVIC FRACTURE [None]
